FAERS Safety Report 24635813 (Version 2)
Quarter: 2024Q4

REPORT INFORMATION
  Report Type: Spontaneous
  Country: CN (occurrence: CN)
  Receive Date: 20241119
  Receipt Date: 20241204
  Transmission Date: 20250114
  Serious: Yes (Hospitalization, Other)
  Sender: SANOFI AVENTIS
  Company Number: CN-MLMSERVICE-20241108-PI250375-00123-3

PATIENT
  Age: 74 Year
  Sex: Female
  Weight: 55 kg

DRUGS (18)
  1. DOCETAXEL [Suspect]
     Active Substance: DOCETAXEL
     Indication: Hormone receptor positive breast cancer
     Dosage: 120 MG
     Dates: start: 20211223
  2. DOCETAXEL [Suspect]
     Active Substance: DOCETAXEL
     Indication: Metastases to lymph nodes
  3. DOCETAXEL [Suspect]
     Active Substance: DOCETAXEL
     Indication: Metastases to bone
  4. DOCETAXEL [Suspect]
     Active Substance: DOCETAXEL
     Indication: Metastases to liver
  5. DOCETAXEL [Suspect]
     Active Substance: DOCETAXEL
     Indication: Metastases to spleen
  6. DOCETAXEL [Suspect]
     Active Substance: DOCETAXEL
     Indication: Metastases to spine
  7. DOCETAXEL [Suspect]
     Active Substance: DOCETAXEL
     Indication: Adenocarcinoma metastatic
  8. DOCETAXEL [Suspect]
     Active Substance: DOCETAXEL
     Indication: Breast cancer stage II
  9. TRAMADOL HYDROCHLORIDE [Concomitant]
     Active Substance: TRAMADOL HYDROCHLORIDE
     Indication: Analgesic therapy
     Dosage: 50 MG, Q12H (ALTERNATELY WITH ACETAMINOPHEN-DIHYDROCODEINE)EXTENDED-RELEASE
     Dates: start: 2021
  10. DIHYDROCODEINE;PARACETAMOL [Concomitant]
     Indication: Analgesic therapy
     Dosage: 500MG, Q6H (ALTERNATING DOSES OF 500 MG OF ACETAMINOPHEN-DIHYDROCODEINE EVERY 6 HOURS WITH TRAMADOL
     Dates: start: 2021
  11. OXYCODONE HYDROCHLORIDE [Concomitant]
     Active Substance: OXYCODONE HYDROCHLORIDE
     Indication: Analgesic therapy
     Dosage: 30 MG, Q12H (SUSTAINED-RELEASE)
     Route: 048
     Dates: start: 2021
  12. OXYCODONE HYDROCHLORIDE [Concomitant]
     Active Substance: OXYCODONE HYDROCHLORIDE
     Dosage: SUSTAINED-RELEASE TABLETS WAS GRADUALLY INCREASED TO 80 MG Q12H
     Dates: start: 2021
  13. MORPHINE [Concomitant]
     Active Substance: MORPHINE
     Indication: Pain
     Dosage: 10 MG (ADDED DURING PAIN FLARE-UPS)
     Dates: start: 2021
  14. MORPHINE [Concomitant]
     Active Substance: MORPHINE
     Dosage: 20 MG (ADDED WHEN THE PAIN WORSENED)
     Dates: start: 2021
  15. HYDROCODONE BITARTRATE [Concomitant]
     Active Substance: HYDROCODONE BITARTRATE
     Indication: Pain
     Dosage: 80 MG, Q12H WITH ADDITIONAL MORPHINE 20 MG TABLETS
     Dates: start: 2021
  16. IBANDRONATE SODIUM [Concomitant]
     Active Substance: IBANDRONATE SODIUM
     Indication: Metastases to bone
     Dosage: 6 MG, QD FOR 3 DAYS AND CONTINUING TREATMENT FOR 3 CONSECUTIVE DAY
     Dates: start: 20211215
  17. IBANDRONATE SODIUM [Concomitant]
     Active Substance: IBANDRONATE SODIUM
     Indication: Bone pain
  18. HYDROMORPHONE HYDROCHLORIDE [Concomitant]
     Active Substance: HYDROMORPHONE HYDROCHLORIDE
     Indication: Pain
     Dosage: 120 MG, Q12H
     Dates: start: 20211215

REACTIONS (1)
  - Myelosuppression [Recovering/Resolving]
